FAERS Safety Report 15718998 (Version 2)
Quarter: 2018Q4

REPORT INFORMATION
  Report Type: Spontaneous
  Country: US (occurrence: US)
  Receive Date: 20181213
  Receipt Date: 20181231
  Transmission Date: 20190205
  Serious: No
  Sender: FDA-Public Use
  Company Number: US-BAYER-2018-228986

PATIENT
  Age: 59 Year
  Sex: Male

DRUGS (4)
  1. LETAIRIS [Suspect]
     Active Substance: AMBRISENTAN
     Indication: PULMONARY HYPERTENSION
     Dosage: 20 MG, ONCE
     Route: 065
     Dates: start: 20181203, end: 20181203
  2. LETAIRIS [Suspect]
     Active Substance: AMBRISENTAN
     Indication: PULMONARY HYPERTENSION
     Dosage: 10 MG, QD
     Route: 065
     Dates: start: 20170331
  3. REMODULIN [Suspect]
     Active Substance: TREPROSTINIL
     Indication: PRODUCT USED FOR UNKNOWN INDICATION
     Dosage: 73.5 MCG/MIN
     Route: 065
     Dates: start: 20171116
  4. ADEMPAS [Suspect]
     Active Substance: RIOCIGUAT
     Indication: PRODUCT USED FOR UNKNOWN INDICATION
     Dosage: 2.0 MG, TID
     Route: 065
     Dates: start: 20170411

REACTIONS (7)
  - Abdominal pain [None]
  - Incorrect dose administered [Recovered/Resolved]
  - Headache [Not Recovered/Not Resolved]
  - Gout [Not Recovered/Not Resolved]
  - Eructation [None]
  - Dyspepsia [Not Recovered/Not Resolved]
  - Frequent bowel movements [None]

NARRATIVE: CASE EVENT DATE: 20181203
